FAERS Safety Report 15193173 (Version 1)
Quarter: 2018Q3

REPORT INFORMATION
  Report Type: Spontaneous
  Country: BR (occurrence: BR)
  Receive Date: 20180725
  Receipt Date: 20180725
  Transmission Date: 20181010
  Serious: Yes (Hospitalization, Other)
  Sender: FDA-Public Use
  Company Number: BR-AMGEN-BRASP2018100063

PATIENT
  Age: 67 Year
  Sex: Female

DRUGS (4)
  1. GAZYVA [Suspect]
     Active Substance: OBINUTUZUMAB
     Dosage: UNK
     Route: 065
  2. CHLORAMBUCIL [Suspect]
     Active Substance: CHLORAMBUCIL
     Indication: CHRONIC LYMPHOCYTIC LEUKAEMIA
     Dosage: UNK
     Route: 065
  3. GRANULOKINE [Suspect]
     Active Substance: FILGRASTIM
     Indication: NEUTROPHIL COUNT DECREASED
     Dosage: UNK
     Route: 065
  4. GAZYVA [Suspect]
     Active Substance: OBINUTUZUMAB
     Indication: CHRONIC LYMPHOCYTIC LEUKAEMIA
     Dosage: UNK
     Route: 065

REACTIONS (7)
  - Chronic lymphocytic leukaemia refractory [Unknown]
  - Haemorrhage [Unknown]
  - Upper limb fracture [Unknown]
  - Hepatosplenomegaly [Unknown]
  - Weight decreased [Unknown]
  - Fall [Unknown]
  - Sciatic nerve injury [Unknown]
